FAERS Safety Report 4312058-9 (Version None)
Quarter: 2004Q1

REPORT INFORMATION
  Report Type: 
  Country: None (occurrence: None)
  Receive Date: 20040303
  Receipt Date: 19950407
  Transmission Date: 20041129
  Serious: Yes (Death, Hospitalization)
  Sender: FDA-Public Use
  Company Number: CL-199400291

PATIENT
  Age: 60 Year
  Sex: Male
  Weight: 97 kg

DRUGS (5)
  1. REMICADE [Suspect]
     Indication: RHEUMATOID ARTHRITIS
     Dosage: 1 MG/KG, INTRAVENOUS
     Route: 042
     Dates: start: 19940222
  2. DICLOFENAC SODIUM [Concomitant]
  3. MISOPROSTIL (MISOPROSTOL) [Concomitant]
  4. FUROSEMIDE [Concomitant]
  5. METHOTREXATE [Concomitant]

REACTIONS (12)
  - ACUTE RESPIRATORY DISTRESS SYNDROME [None]
  - BACTERIAL INFECTION [None]
  - BRONCHITIS ACUTE [None]
  - CARDIAC ARREST [None]
  - CARDIAC FAILURE [None]
  - CIRCULATORY COLLAPSE [None]
  - HODGKIN'S DISEASE STAGE II [None]
  - LYMPHADENOPATHY [None]
  - PNEUMONIA [None]
  - SEPSIS [None]
  - SHOCK [None]
  - SPLENOMEGALY [None]
